FAERS Safety Report 9217494 (Version 1)
Quarter: 2013Q2

REPORT INFORMATION
  Report Type: Spontaneous
  Country: FR (occurrence: FR)
  Receive Date: 20130408
  Receipt Date: 20130408
  Transmission Date: 20140414
  Serious: Yes (Hospitalization)
  Sender: FDA-Public Use
  Company Number: FR-ROCHE-1210088

PATIENT
  Sex: Female

DRUGS (7)
  1. ZELBORAF [Suspect]
     Indication: METASTATIC MALIGNANT MELANOMA
     Route: 048
     Dates: start: 20110829
  2. ZELBORAF [Suspect]
     Dosage: 3 TABLETS IN THE MORNING AND EVENING (75% OF THE ORIGINAL DOSE)
     Route: 048
  3. TEMODAL [Suspect]
     Indication: PRODUCT USED FOR UNKNOWN INDICATION
     Route: 048
     Dates: start: 201205, end: 201211
  4. KEPPRA [Suspect]
     Indication: PRODUCT USED FOR UNKNOWN INDICATION
     Route: 048
     Dates: start: 20110815
  5. PLAVIX [Concomitant]
  6. KARDEGIC [Concomitant]
  7. PROCORALAN [Concomitant]

REACTIONS (1)
  - Myocardial infarction [Recovered/Resolved]
